FAERS Safety Report 12978002 (Version 1)
Quarter: 2016Q4

REPORT INFORMATION
  Report Type: Report from Study
  Country: JP (occurrence: JP)
  Receive Date: 20161128
  Receipt Date: 20161128
  Transmission Date: 20170207
  Serious: Yes (Other)
  Sender: FDA-Public Use
  Company Number: JP-ASTELLAS-2010JP006859

PATIENT
  Age: 26 Year
  Sex: Female
  Weight: 52 kg

DRUGS (48)
  1. PREDONINE [Suspect]
     Active Substance: PREDNISOLONE\PREDNISOLONE ACETATE\PREDNISOLONE SODIUM SUCCINATE
     Route: 048
     Dates: start: 20130213
  2. IMURAN [Concomitant]
     Active Substance: AZATHIOPRINE
     Route: 048
     Dates: start: 20121219
  3. PERSANTINE [Concomitant]
     Active Substance: DIPYRIDAMOLE
     Indication: LUPUS NEPHRITIS
     Route: 048
     Dates: end: 20100218
  4. HERBAL NOS [Concomitant]
     Active Substance: HERBALS
     Indication: FUNCTIONAL GASTROINTESTINAL DISORDER
     Route: 048
     Dates: start: 20111114, end: 20111220
  5. ERYTHROCIN                         /00020901/ [Concomitant]
     Active Substance: ERYTHROMYCIN ETHYLSUCCINATE
     Route: 048
     Dates: start: 20150529, end: 20151006
  6. BREDININ [Suspect]
     Active Substance: MIZORIBINE
     Route: 048
     Dates: start: 20101119, end: 20120910
  7. PREDONINE [Suspect]
     Active Substance: PREDNISOLONE\PREDNISOLONE ACETATE\PREDNISOLONE SODIUM SUCCINATE
     Route: 048
     Dates: start: 20091106, end: 20100107
  8. PREDONINE [Suspect]
     Active Substance: PREDNISOLONE\PREDNISOLONE ACETATE\PREDNISOLONE SODIUM SUCCINATE
     Route: 048
     Dates: start: 20100423, end: 20100622
  9. BREDININ [Suspect]
     Active Substance: MIZORIBINE
     Route: 048
     Dates: start: 20100903, end: 20101118
  10. MUCOSTA [Concomitant]
     Active Substance: REBAMIPIDE
     Indication: EPICONDYLITIS
     Route: 048
     Dates: start: 20110207, end: 20110214
  11. EDIROL [Concomitant]
     Active Substance: ELDECALCITOL
     Indication: PRODUCT USED FOR UNKNOWN INDICATION
     Dosage: 0.75 ?G, ONCE DAILY
     Route: 048
     Dates: start: 20120427, end: 20150705
  12. PREDONINE [Suspect]
     Active Substance: PREDNISOLONE\PREDNISOLONE ACETATE\PREDNISOLONE SODIUM SUCCINATE
     Route: 048
     Dates: start: 20080515, end: 20081008
  13. PREDONINE [Suspect]
     Active Substance: PREDNISOLONE\PREDNISOLONE ACETATE\PREDNISOLONE SODIUM SUCCINATE
     Route: 048
     Dates: start: 20100108, end: 20100422
  14. BREDININ [Suspect]
     Active Substance: MIZORIBINE
     Route: 048
     Dates: start: 20100108, end: 20100622
  15. HYPEN                              /00340101/ [Concomitant]
     Indication: EPICONDYLITIS
     Route: 048
     Dates: start: 20110207, end: 20110214
  16. GASCON [Concomitant]
     Active Substance: DIMETHICONE
     Indication: FUNCTIONAL GASTROINTESTINAL DISORDER
     Route: 048
     Dates: start: 20111114, end: 20111220
  17. BIOFERMIN                          /01617201/ [Concomitant]
     Active Substance: BACILLUS SUBTILIS\LACTOBACILLUS ACIDOPHILUS\STREPTOCOCCUS FAECAIS
     Indication: ENTEROCOLITIS
     Route: 048
     Dates: start: 20110221, end: 20110228
  18. LOXONIN [Concomitant]
     Active Substance: LOXOPROFEN SODIUM
     Indication: ENTEROCOLITIS
     Route: 048
     Dates: start: 20110221, end: 20110221
  19. TACROLIMUS. [Suspect]
     Active Substance: TACROLIMUS
     Indication: LUPUS NEPHRITIS
     Route: 048
     Dates: start: 20071010
  20. PREDONINE [Suspect]
     Active Substance: PREDNISOLONE\PREDNISOLONE ACETATE\PREDNISOLONE SODIUM SUCCINATE
     Route: 048
     Dates: start: 20081009, end: 20090114
  21. PREDONINE [Suspect]
     Active Substance: PREDNISOLONE\PREDNISOLONE ACETATE\PREDNISOLONE SODIUM SUCCINATE
     Route: 048
     Dates: start: 20100623, end: 20101007
  22. TAKEPRON [Concomitant]
     Active Substance: LANSOPRAZOLE
     Indication: FUNCTIONAL GASTROINTESTINAL DISORDER
     Route: 048
     Dates: start: 20111020, end: 20111105
  23. TAKEPRON [Concomitant]
     Active Substance: LANSOPRAZOLE
     Indication: PROPHYLAXIS
     Route: 048
     Dates: end: 20150705
  24. PL [Concomitant]
     Active Substance: ACETAMINOPHEN\CAFFEINE\PROMETHAZINE\SALICYLAMIDE
     Indication: UPPER RESPIRATORY TRACT INFLAMMATION
     Route: 048
     Dates: start: 20111208, end: 20111215
  25. CIPROXAN                           /00697202/ [Concomitant]
     Active Substance: CIPROFLOXACIN
     Indication: ENTEROCOLITIS
     Route: 048
     Dates: start: 20110221, end: 20110225
  26. CALONAL [Concomitant]
     Active Substance: ACETAMINOPHEN
     Indication: ENTEROCOLITIS
     Route: 048
     Dates: start: 20110221, end: 20110222
  27. AMETHYST [Concomitant]
     Active Substance: ETHINYL ESTRADIOL\LEVONORGESTREL
     Indication: ACUTE SINUSITIS
     Route: 048
     Dates: start: 20120815, end: 20120822
  28. PREDONINE [Suspect]
     Active Substance: PREDNISOLONE\PREDNISOLONE ACETATE\PREDNISOLONE SODIUM SUCCINATE
     Indication: LUPUS NEPHRITIS
     Route: 048
     Dates: end: 20080514
  29. PREDONINE [Suspect]
     Active Substance: PREDNISOLONE\PREDNISOLONE ACETATE\PREDNISOLONE SODIUM SUCCINATE
     Route: 048
     Dates: start: 20090115, end: 20091105
  30. ALFAROL [Concomitant]
     Active Substance: ALFACALCIDOL
     Indication: PRODUCT USED FOR UNKNOWN INDICATION
     Route: 048
     Dates: end: 20120426
  31. OKINAZOLE [Concomitant]
     Indication: VAGINAL INFECTION
     Route: 067
     Dates: start: 20100616, end: 20100616
  32. ERYTHROCIN                         /00020901/ [Concomitant]
     Active Substance: ERYTHROMYCIN ETHYLSUCCINATE
     Indication: DRUG LEVEL INCREASED
     Route: 048
     Dates: end: 20150528
  33. PREDONINE [Suspect]
     Active Substance: PREDNISOLONE\PREDNISOLONE ACETATE\PREDNISOLONE SODIUM SUCCINATE
     Route: 048
     Dates: start: 20101008, end: 20130212
  34. IMURAN [Concomitant]
     Active Substance: AZATHIOPRINE
     Indication: SYSTEMIC LUPUS ERYTHEMATOSUS
     Route: 048
     Dates: start: 20121121, end: 20121218
  35. ZANTAC [Concomitant]
     Active Substance: RANITIDINE HYDROCHLORIDE
     Indication: PROPHYLAXIS
     Route: 048
  36. INTEBAN [Concomitant]
     Active Substance: INDOMETHACIN
     Indication: EPICONDYLITIS
     Dosage: UNK UNK, UNKNOWN FREQ.
     Route: 061
     Dates: start: 20110207, end: 20110214
  37. COSPANON [Concomitant]
     Active Substance: FLOPROPIONE
     Indication: FUNCTIONAL GASTROINTESTINAL DISORDER
     Route: 048
     Dates: start: 20111106, end: 20111114
  38. KLARICID                           /00984601/ [Interacting]
     Active Substance: CLARITHROMYCIN
     Indication: ACUTE SINUSITIS
     Dosage: UNK UNK, UNKNOWN FREQ.
     Route: 048
     Dates: start: 20120815, end: 20120822
  39. BREDININ [Suspect]
     Active Substance: MIZORIBINE
     Indication: LUPUS NEPHRITIS
     Route: 048
     Dates: start: 20091016, end: 20100107
  40. BREDININ [Suspect]
     Active Substance: MIZORIBINE
     Route: 048
     Dates: start: 20100623, end: 20100902
  41. IMURAN [Concomitant]
     Active Substance: AZATHIOPRINE
     Indication: LUPUS NEPHRITIS
     Route: 048
     Dates: start: 20120911, end: 20121120
  42. BAKTAR [Concomitant]
     Active Substance: SULFAMETHOXAZOLE\TRIMETHOPRIM
     Indication: PROPHYLAXIS
     Route: 048
     Dates: end: 20150705
  43. SELBEX [Concomitant]
     Active Substance: TEPRENONE
     Indication: PROPHYLAXIS
     Route: 048
  44. GLAKAY [Concomitant]
     Active Substance: MENATETRENONE
     Indication: PROPHYLAXIS
     Route: 048
     Dates: end: 20150705
  45. PURSENNID                          /00142207/ [Concomitant]
     Active Substance: SENNOSIDES A AND B
     Indication: CONSTIPATION
     Dosage: UNK UNK, UNKNOWN FREQ.
     Route: 048
     Dates: end: 20080802
  46. NEXIUM [Concomitant]
     Active Substance: ESOMEPRAZOLE MAGNESIUM
     Indication: FUNCTIONAL GASTROINTESTINAL DISORDER
     Route: 048
     Dates: start: 20111106, end: 20111220
  47. GASMOTIN [Concomitant]
     Active Substance: MOSAPRIDE CITRATE
     Indication: FUNCTIONAL GASTROINTESTINAL DISORDER
     Route: 048
     Dates: start: 20111114, end: 20111220
  48. KLARICID                           /00984601/ [Interacting]
     Active Substance: CLARITHROMYCIN
     Indication: DRUG LEVEL INCREASED
     Dosage: UNK UNK, UNKNOWN FREQ.
     Route: 048
     Dates: start: 20140509, end: 20140522

REACTIONS (10)
  - Upper respiratory tract inflammation [Recovered/Resolved]
  - Constipation [Recovered/Resolved]
  - Systemic lupus erythematosus [Recovering/Resolving]
  - Vulvovaginal candidiasis [Recovered/Resolved]
  - Enterocolitis [Recovering/Resolving]
  - Epicondylitis [Recovering/Resolving]
  - Functional gastrointestinal disorder [Recovered/Resolved]
  - Acute sinusitis [Recovered/Resolved]
  - Maternal exposure during pregnancy [Unknown]
  - Drug interaction [Unknown]

NARRATIVE: CASE EVENT DATE: 20100613
